FAERS Safety Report 5470859-8 (Version None)
Quarter: 2007Q3

REPORT INFORMATION
  Report Type: 
  Country: None (occurrence: None)
  Receive Date: 20070928
  Receipt Date: 20070917
  Transmission Date: 20080115
  Serious: Yes (Other)
  Sender: FDA-Public Use
  Company Number: DE-ELI_LILLY_AND_COMPANY-DE200709003463

PATIENT
  Age: 77 Year
  Sex: Male
  Weight: 75 kg

DRUGS (4)
  1. DULOXETINE HYDROCHLORIDE [Suspect]
     Indication: URINARY INCONTINENCE
     Dosage: 30 MG, UNKNOWN
     Route: 048
     Dates: start: 20070726, end: 20070809
  2. RAMIPRIL [Concomitant]
     Dosage: 2.5 UNK, UNKNOWN
     Route: 048
  3. AMLODIPINE [Concomitant]
     Dosage: 10 UNK, UNKNOWN
     Route: 048
  4. ARICEPT [Concomitant]
     Dosage: 10 UNK, UNKNOWN
     Route: 048

REACTIONS (2)
  - BLOOD PRESSURE INCREASED [None]
  - DIZZINESS [None]
